FAERS Safety Report 12144456 (Version 1)
Quarter: 2016Q1

REPORT INFORMATION
  Report Type: Spontaneous
  Country: US (occurrence: None)
  Receive Date: 20160303
  Receipt Date: 20160303
  Transmission Date: 20160526
  Serious: Yes (Other)
  Sender: FDA-Public Use
  Company Number: None

PATIENT
  Age: 18 Year
  Sex: Female
  Weight: 64.41 kg

DRUGS (9)
  1. VITAMIN D3 [Concomitant]
     Active Substance: CHOLECALCIFEROL
  2. DEPO-PROVERA [Suspect]
     Active Substance: MEDROXYPROGESTERONE ACETATE
     Indication: CONTRACEPTION
     Route: 030
     Dates: start: 20150910, end: 20151210
  3. LAMICTAL [Concomitant]
     Active Substance: LAMOTRIGINE
  4. PRENATAL VITAMINS [Concomitant]
     Active Substance: VITAMINS
  5. ZINC [Concomitant]
     Active Substance: ZINC\ZINC CHLORIDE
  6. PRISTIQ EXTENDED RELEASE [Concomitant]
     Active Substance: DESVENLAFAXINE SUCCINATE
  7. GINKGO [Concomitant]
     Active Substance: GINKGO
  8. VYVANSE [Concomitant]
     Active Substance: LISDEXAMFETAMINE DIMESYLATE
  9. LEXAPRO [Concomitant]
     Active Substance: ESCITALOPRAM OXALATE

REACTIONS (1)
  - Menorrhagia [None]
